FAERS Safety Report 15524303 (Version 1)
Quarter: 2018Q4

REPORT INFORMATION
  Report Type: Spontaneous
  Country: US (occurrence: US)
  Receive Date: 20181018
  Receipt Date: 20181018
  Transmission Date: 20190205
  Serious: No
  Sender: FDA-Public Use
  Company Number: US-BAUSCH-BL-2018-026977

PATIENT
  Sex: Female

DRUGS (1)
  1. OCEANSIDE GENERIC NIFEDIPINE ER [Suspect]
     Active Substance: NIFEDIPINE
     Indication: PRODUCT USED FOR UNKNOWN INDICATION
     Dosage: EXTENDED RELEASE TABLETS
     Route: 048

REACTIONS (1)
  - Ill-defined disorder [Not Recovered/Not Resolved]
